FAERS Safety Report 21002374 (Version 6)
Quarter: 2022Q3

REPORT INFORMATION
  Report Type: Spontaneous
  Country: CN (occurrence: CN)
  Receive Date: 20220624
  Receipt Date: 20220926
  Transmission Date: 20221027
  Serious: Yes (Hospitalization)
  Sender: FDA-Public Use
  Company Number: CN-JNJFOC-20220633637

PATIENT
  Age: 44 Year
  Sex: Male
  Weight: 57 kg

DRUGS (5)
  1. GUSELKUMAB [Suspect]
     Active Substance: GUSELKUMAB
     Indication: Psoriasis
     Route: 058
     Dates: start: 20210830
  2. ADALIREL [Concomitant]
  3. PREDNISOLONE [Concomitant]
     Active Substance: PREDNISOLONE
  4. TAZAROTENE [Concomitant]
     Active Substance: TAZAROTENE
     Route: 061
  5. FLUMETHASONE [Concomitant]
     Active Substance: FLUMETHASONE

REACTIONS (4)
  - Peripheral T-cell lymphoma unspecified [Unknown]
  - Pneumonia [Unknown]
  - Upper respiratory tract infection [Unknown]
  - Bone pain [Unknown]

NARRATIVE: CASE EVENT DATE: 20220501
